FAERS Safety Report 4710096-5 (Version None)
Quarter: 2005Q3

REPORT INFORMATION
  Report Type: 
  Country: None (occurrence: None)
  Receive Date: 20050708
  Receipt Date: 20050708
  Transmission Date: 20060218
  Serious: No
  Sender: FDA-Public Use
  Company Number: None

PATIENT
  Age: 30 Year
  Sex: Male

DRUGS (1)
  1. TORADOL [Suspect]
     Dosage: ;;0;0

REACTIONS (3)
  - OEDEMA GENITAL [None]
  - PAIN [None]
  - SCROTAL OEDEMA [None]
